FAERS Safety Report 14056114 (Version 1)
Quarter: 2017Q4

REPORT INFORMATION
  Report Type: Spontaneous
  Country: ES (occurrence: ES)
  Receive Date: 20171006
  Receipt Date: 20171006
  Transmission Date: 20180321
  Serious: Yes (Other)
  Sender: FDA-Public Use
  Company Number: ES-JNJFOC-20171001920

PATIENT
  Age: 64 Year
  Sex: Male

DRUGS (1)
  1. XEPLION [Suspect]
     Active Substance: PALIPERIDONE PALMITATE
     Indication: SCHIZOPHRENIA
     Route: 030
     Dates: start: 20120529

REACTIONS (1)
  - Hyperbilirubinaemia [Not Recovered/Not Resolved]

NARRATIVE: CASE EVENT DATE: 20150203
